FAERS Safety Report 5117273-2 (Version None)
Quarter: 2006Q3

REPORT INFORMATION
  Report Type: 
  Country: None (occurrence: None)
  Receive Date: 20060929
  Receipt Date: 20060918
  Transmission Date: 20061208
  Serious: Yes (Death, Hospitalization)
  Sender: FDA-Public Use
  Company Number: US-KINGPHARMUSA00001-K200601180

PATIENT
  Age: 85 Year
  Sex: Male

DRUGS (12)
  1. ALTACE [Suspect]
     Dosage: 5 MG, QD
     Route: 048
     Dates: end: 20060809
  2. EQUANIL [Concomitant]
     Route: 048
  3. IMOVANE [Concomitant]
     Route: 048
  4. FORLAX [Concomitant]
     Route: 048
  5. ATENOLOL [Suspect]
     Route: 048
     Dates: end: 20060811
  6. KARDEGIC /FRA/ [Suspect]
     Dosage: 1 U, QD
     Route: 048
     Dates: end: 20060811
  7. REMINYL /UNK/ [Suspect]
     Dosage: 1 U, QD
     Route: 048
     Dates: end: 20060809
  8. INEXIUM /01479302/ [Suspect]
     Dosage: 1 U, QD
     Route: 048
     Dates: end: 20060811
  9. BRICANYL [Concomitant]
     Route: 048
  10. VENTOLIN [Concomitant]
     Route: 048
  11. LASIX [Concomitant]
     Route: 048
  12. INSULIN RETARD LEO [Concomitant]
     Dosage: UNK, UNK
     Route: 058

REACTIONS (10)
  - CONFUSIONAL STATE [None]
  - DEHYDRATION [None]
  - ELECTROENCEPHALOGRAM ABNORMAL [None]
  - ESCHAR [None]
  - INFLAMMATION [None]
  - PLATELET COUNT DECREASED [None]
  - PURPURA [None]
  - REFUSAL OF TREATMENT BY PATIENT [None]
  - RENAL FAILURE [None]
  - VASCULITIS NECROTISING [None]
